FAERS Safety Report 8113067-4 (Version None)
Quarter: 2012Q1

REPORT INFORMATION
  Report Type: 
  Country: None (occurrence: None)
  Receive Date: 20120203
  Receipt Date: 20120126
  Transmission Date: 20120608
  Serious: Yes (Death, Hospitalization)
  Sender: FDA-Public Use
  Company Number: ES-GLAXOSMITHKLINE-B0747295A

PATIENT
  Sex: Male
  Weight: 84 kg

DRUGS (1)
  1. CHLORAMBUCIL [Suspect]
     Indication: CHRONIC LYMPHOCYTIC LEUKAEMIA
     Dosage: 42MG EVERY TWO WEEKS
     Route: 048
     Dates: start: 20110512, end: 20110808

REACTIONS (1)
  - RESPIRATORY TRACT INFECTION [None]
